FAERS Safety Report 4869703-9 (Version None)
Quarter: 2005Q4

REPORT INFORMATION
  Report Type: 
  Country: None (occurrence: None)
  Receive Date: 20051223
  Receipt Date: 20051213
  Transmission Date: 20060501
  Serious: Yes (Hospitalization)
  Sender: FDA-Public Use
  Company Number: 2005P1000565

PATIENT
  Age: 68 Year
  Sex: Male
  Weight: 83 kg

DRUGS (10)
  1. RETEPLASE (RETEPLASE) [Suspect]
     Indication: ACUTE MYOCARDIAL INFARCTION
     Dosage: IV
     Route: 042
     Dates: start: 20050819, end: 20050819
  2. ABCIXIMAB (ABCIXIMAB) [Suspect]
     Indication: ACUTE MYOCARDIAL INFARCTION
     Dosage: IV
     Route: 042
     Dates: start: 20050819
  3. SIMVASTATIN [Concomitant]
  4. ARTHROTEC [Concomitant]
  5. ASPIRIN [Concomitant]
  6. LEVOTHYROXINE [Concomitant]
  7. CLOPIDOGREL [Concomitant]
  8. RAMIPRIL [Concomitant]
  9. OMEPRAZOLE [Concomitant]
  10. SULFASALAZINE [Concomitant]

REACTIONS (2)
  - BRADYCARDIA [None]
  - DYSPNOEA [None]
